FAERS Safety Report 11936416 (Version 1)
Quarter: 2016Q1

REPORT INFORMATION
  Report Type: Spontaneous
  Country: US (occurrence: US)
  Receive Date: 20160121
  Receipt Date: 20160121
  Transmission Date: 20160526
  Serious: No
  Sender: FDA-Public Use
  Company Number: US-AMGEN-USASP2016005332

PATIENT
  Age: 68 Year
  Sex: Male

DRUGS (13)
  1. TYLENOL [Concomitant]
     Active Substance: ACETAMINOPHEN
  2. LISINOPRIL. [Concomitant]
     Active Substance: LISINOPRIL
  3. METHOTREXATE [Concomitant]
     Active Substance: METHOTREXATE
  4. ENBREL [Suspect]
     Active Substance: ETANERCEPT
     Indication: RHEUMATOID ARTHRITIS
     Dosage: 50 MG, QWK
     Route: 058
     Dates: start: 201508
  5. OMEPRAZOLE. [Concomitant]
     Active Substance: OMEPRAZOLE
  6. ALEVE [Concomitant]
     Active Substance: NAPROXEN SODIUM
  7. FOLIC ACID. [Concomitant]
     Active Substance: FOLIC ACID
  8. PREDNISONE. [Concomitant]
     Active Substance: PREDNISONE
  9. TAMSULOSIN [Concomitant]
     Active Substance: TAMSULOSIN
  10. CALCIUM [Concomitant]
     Active Substance: CALCIUM
  11. CRESTOR [Concomitant]
     Active Substance: ROSUVASTATIN CALCIUM
     Dosage: UNK
  12. CELEBREX [Concomitant]
     Active Substance: CELECOXIB
  13. TUMS                               /00193601/ [Concomitant]
     Active Substance: CALCIUM CARBONATE\MAGNESIUM CARBONATE\MAGNESIUM TRISILICATE

REACTIONS (2)
  - Red blood cell count decreased [Unknown]
  - Platelet count decreased [Unknown]
